FAERS Safety Report 16169330 (Version 1)
Quarter: 2019Q2

REPORT INFORMATION
  Report Type: Spontaneous
  Country: US (occurrence: US)
  Receive Date: 20190406
  Receipt Date: 20190406
  Transmission Date: 20190711
  Serious: Yes (Hospitalization)
  Sender: FDA-Public Use
  Company Number: None

PATIENT
  Age: 51 Year
  Sex: Female

DRUGS (1)
  1. INJECTAFER [Suspect]
     Active Substance: FERRIC CARBOXYMALTOSE

REACTIONS (7)
  - Erythema [None]
  - Urticaria [None]
  - Drug hypersensitivity [None]
  - Chest discomfort [None]
  - Blood pressure increased [None]
  - Drug-disease interaction [None]
  - Dysphonia [None]

NARRATIVE: CASE EVENT DATE: 20190328
